FAERS Safety Report 8602848-6 (Version None)
Quarter: 2012Q3

REPORT INFORMATION
  Report Type: 
  Country: None (occurrence: None)
  Receive Date: 20120817
  Receipt Date: 20120726
  Transmission Date: 20120928
  Serious: Yes (Other)
  Sender: FDA-Public Use
  Company Number: CR-GLAXOSMITHKLINE-A0980876A

PATIENT
  Age: 25 Year
  Sex: Female

DRUGS (1)
  1. WELLBUTRIN [Suspect]
     Indication: DYSTHYMIC DISORDER
     Dosage: 300MG PER DAY
     Route: 065
     Dates: start: 20120501, end: 20120501

REACTIONS (7)
  - BRONCHOSPASM [None]
  - URTICARIA [None]
  - FACE OEDEMA [None]
  - DERMATITIS CONTACT [None]
  - RASH [None]
  - SKIN REACTION [None]
  - LARYNGEAL OEDEMA [None]
